FAERS Safety Report 23321527 (Version 1)
Quarter: 2023Q4

REPORT INFORMATION
  Report Type: Spontaneous
  Country: CN (occurrence: CN)
  Receive Date: 20231220
  Receipt Date: 20231220
  Transmission Date: 20240109
  Serious: Yes (Hospitalization, Other)
  Sender: FDA-Public Use
  Company Number: CN-BAYER-2023A177309

PATIENT
  Age: 73 Year
  Sex: Male
  Weight: 68 kg

DRUGS (2)
  1. STIVARGA [Suspect]
     Active Substance: REGORAFENIB
     Indication: Hepatic cancer
     Dosage: 80 MG, QD
     Route: 048
     Dates: start: 20230911, end: 20230915
  2. STIVARGA [Suspect]
     Active Substance: REGORAFENIB
     Indication: Hepatic cancer
     Dosage: 80 MG, QD
     Route: 048
     Dates: start: 20230925, end: 202309

REACTIONS (24)
  - Chest pain [Recovering/Resolving]
  - Palpitations [Recovering/Resolving]
  - Chest discomfort [Recovering/Resolving]
  - Electrocardiogram ST-T segment abnormal [None]
  - Platelet count decreased [None]
  - N-terminal prohormone brain natriuretic peptide increased [Recovering/Resolving]
  - Muscular weakness [None]
  - Asthenia [None]
  - Atrial tachycardia [None]
  - Lymphocyte percentage decreased [None]
  - Monocyte percentage increased [None]
  - Eosinophil percentage decreased [None]
  - Lymphocyte count decreased [None]
  - Monocyte count increased [None]
  - Eosinophil count decreased [None]
  - Red blood cell count decreased [None]
  - Haemoglobin decreased [None]
  - Haematocrit decreased [None]
  - Mean cell volume decreased [None]
  - Mean cell haemoglobin decreased [None]
  - Red cell distribution width increased [None]
  - Blood sodium decreased [None]
  - Blood chloride decreased [None]
  - Off label use [None]

NARRATIVE: CASE EVENT DATE: 20230911
